FAERS Safety Report 7055103-2 (Version None)
Quarter: 2010Q4

REPORT INFORMATION
  Report Type: 
  Country: None (occurrence: None)
  Receive Date: 20101019
  Receipt Date: 20101019
  Transmission Date: 20110411
  Serious: No
  Sender: FDA-Public Use
  Company Number: None

PATIENT
  Age: 43 Year
  Sex: Female
  Weight: 71.2147 kg

DRUGS (1)
  1. AZELEX [Suspect]
     Indication: LENTIGO
     Dosage: LIGTH 2 TIMES DAY
     Dates: start: 20100808, end: 20100914

REACTIONS (3)
  - HERPES VIRUS INFECTION [None]
  - SENSITIVITY OF TEETH [None]
  - TOOTHACHE [None]
